FAERS Safety Report 19208912 (Version 1)
Quarter: 2021Q2

REPORT INFORMATION
  Report Type: Spontaneous
  Country: US (occurrence: US)
  Receive Date: 20210504
  Receipt Date: 20210504
  Transmission Date: 20210717
  Serious: Yes (Hospitalization)
  Sender: FDA-Public Use
  Company Number: US-SPECGX-T202100377

PATIENT
  Age: 51 Year
  Sex: Male

DRUGS (2)
  1. METHADONE [Suspect]
     Active Substance: METHADONE HYDROCHLORIDE
     Indication: DRUG DEPENDENCE
     Dosage: 200 MILLIGRAM, QD
     Route: 065
  2. METHADONE [Suspect]
     Active Substance: METHADONE HYDROCHLORIDE
     Dosage: 700 MILLIGRAM, QD
     Route: 065

REACTIONS (6)
  - Abnormal behaviour [Unknown]
  - Agitation [Unknown]
  - Intentional product misuse [Unknown]
  - Hypokalaemia [Unknown]
  - Confusional state [Unknown]
  - Torsade de pointes [Unknown]
